FAERS Safety Report 17942933 (Version 1)
Quarter: 2020Q2

REPORT INFORMATION
  Report Type: Spontaneous
  Country: US (occurrence: US)
  Receive Date: 20200625
  Receipt Date: 20200625
  Transmission Date: 20200714
  Serious: No
  Sender: FDA-Public Use
  Company Number: US-TEVA-2020-US-1789954

PATIENT
  Sex: Female

DRUGS (14)
  1. ASPIRIN EC 81 MG [Concomitant]
     Dosage: TABLET DR
  2. FISH OIL-OMEGA-3-VIT D [Concomitant]
  3. AUSTEDO [Suspect]
     Active Substance: DEUTETRABENAZINE
     Indication: DYSKINESIA
     Dosage: 6 MILLIGRAM DAILY;
     Route: 065
  4. PROZAC [Concomitant]
     Active Substance: FLUOXETINE HYDROCHLORIDE
  5. CALCIUM 600 MG TABLET [Concomitant]
  6. COQ-10 100 MG CAPSULE [Concomitant]
  7. XANAX 0.25 MG TABLET [Concomitant]
  8. VSL#3 112.5B CAPSULE [Concomitant]
  9. XANAX XR 1 MG TAB ER 24H [Concomitant]
  10. PROPRANOLOL HCL 10 MG TABLET [Concomitant]
  11. ATORVASTATIN CALCIUM 10 MG [Concomitant]
  12. TURMERIC 1053 MG TABLET [Concomitant]
  13. VRAYLAR 1.5 MG-3MG CAP DS PK [Concomitant]
  14. BENZTROPINE MESYLATE 0.5 MG TABLET [Concomitant]

REACTIONS (1)
  - Anxiety [Unknown]
